FAERS Safety Report 15868526 (Version 7)
Quarter: 2019Q4

REPORT INFORMATION
  Report Type: Report from Study
  Country: DE (occurrence: DE)
  Receive Date: 20190125
  Receipt Date: 20191218
  Transmission Date: 20200122
  Serious: Yes (Death, Hospitalization, Other)
  Sender: FDA-Public Use
  Company Number: DE-AMGEN-DEUCT2019011370

PATIENT
  Age: 61 Year
  Sex: Female
  Weight: 57 kg

DRUGS (25)
  1. MEDICAIN [Concomitant]
     Dosage: 7.5 MILLIGRAM
     Route: 042
     Dates: start: 20181128, end: 20181128
  2. DIMENHYDRINATE. [Concomitant]
     Active Substance: DIMENHYDRINATE
     Dosage: 62 MILLIGRAM
     Route: 042
     Dates: start: 20181218, end: 20181218
  3. FENTANYL. [Concomitant]
     Active Substance: FENTANYL
     Dosage: 12.5 TO 50 MICROGRAM
     Route: 062
     Dates: start: 20181206, end: 20190108
  4. NOVAMINSULFON [Concomitant]
     Active Substance: METAMIZOLE
     Dosage: 500-1000 MILLIGRAM
     Route: 048
     Dates: start: 2016, end: 20190109
  5. AMLODIPINE [Concomitant]
     Active Substance: AMLODIPINE BESYLATE
     Dosage: 5 MILLIGRAM
     Route: 048
     Dates: start: 201808, end: 20190115
  6. HALOPERIDOL. [Concomitant]
     Active Substance: HALOPERIDOL
     Dosage: 3 GTT DROPS
     Route: 048
     Dates: start: 20181218, end: 20181218
  7. MEPIVACAINE [Concomitant]
     Active Substance: MEPIVACAINE HYDROCHLORIDE
     Dosage: 10 MILLILITER
     Route: 042
     Dates: start: 20181217, end: 20181217
  8. TALIMOGENE LAHERPAREPVEC [Suspect]
     Active Substance: TALIMOGENE LAHERPAREPVEC
     Indication: COLORECTAL CANCER
     Dosage: 3 MILLILITER
     Route: 026
     Dates: start: 20181128, end: 20181128
  9. ATEZOLIZUMAB. [Suspect]
     Active Substance: ATEZOLIZUMAB
     Indication: COLORECTAL CANCER
     Dosage: UNK
     Route: 042
     Dates: start: 20181128, end: 20181128
  10. METOCLOPRAMID [METOCLOPRAMIDE] [Concomitant]
     Active Substance: METOCLOPRAMIDE
     Dosage: 10 MILLIGRAM
     Route: 048
     Dates: start: 20181217, end: 20181217
  11. LISINOPRIL AND HYDROCHLOROTHIAZIDE [Concomitant]
     Active Substance: HYDROCHLOROTHIAZIDE\LISINOPRIL
     Dosage: 10 MILLIGRAM
     Route: 048
     Dates: start: 2006, end: 201901
  12. MOVICOL [Concomitant]
     Active Substance: POLYETHYLENE GLYCOL 3350\POTASSIUM CHLORIDE\SODIUM BICARBONATE\SODIUM CHLORIDE
     Dosage: 1 UNK
     Route: 048
     Dates: start: 2016, end: 20190109
  13. HYDROMORPHONE [Concomitant]
     Active Substance: HYDROMORPHONE
     Dosage: 2-12 MILLIGRAM
     Dates: start: 20181203, end: 20181218
  14. ULTRAVIST [Concomitant]
     Active Substance: IOPROMIDE
     Dosage: 60-100 MILLILITER
     Route: 042
     Dates: start: 20181115, end: 20190102
  15. BIFITERAL [Concomitant]
     Active Substance: LACTULOSE
     Dosage: 1 UNK
     Route: 048
     Dates: start: 20181206, end: 20190110
  16. MCP [Concomitant]
     Active Substance: METOCLOPRAMIDE HYDROCHLORIDE
     Dosage: 10 MILLILITER
     Route: 048
     Dates: start: 20181227
  17. TORASEMID [Concomitant]
     Active Substance: TORSEMIDE
     Dosage: 5 MILLIGRAM
     Route: 048
     Dates: start: 20181227, end: 20190101
  18. PARACETAMOL [Concomitant]
     Active Substance: ACETAMINOPHEN
     Dosage: 500 MILLIGRAM AND 1 GRAM
     Dates: start: 20181128, end: 20181218
  19. METOPROLOL. [Concomitant]
     Active Substance: METOPROLOL
     Dosage: 50 MILLIGRAM
     Route: 048
     Dates: start: 2006, end: 20190115
  20. EFFENTORA [Concomitant]
     Active Substance: FENTANYL CITRATE
     Dosage: 200 MICROGRAM
     Route: 048
     Dates: start: 20181217
  21. IBUPROFEN. [Concomitant]
     Active Substance: IBUPROFEN
     Dosage: 400-800 MILLIGRAM
     Route: 048
     Dates: start: 20181129, end: 20181219
  22. SPIRONOLACTON [Concomitant]
     Active Substance: SPIRONOLACTONE
     Dosage: 50 MILLIGRAM
     Route: 048
     Dates: start: 20181220, end: 20190108
  23. METAMIZOL [Concomitant]
     Active Substance: METAMIZOLE SODIUM
     Dosage: 2.5 GRAM
     Route: 042
     Dates: start: 20181218, end: 20181218
  24. HYDROCHLOROTHIAZID [Concomitant]
     Active Substance: HYDROCHLOROTHIAZIDE
     Dosage: 12.5 MG, UNK
     Route: 048
     Dates: start: 2016
  25. ONDANSETRON [Concomitant]
     Active Substance: ONDANSETRON
     Dosage: 8 MILLIGRAM
     Route: 042
     Dates: start: 20181218, end: 20181218

REACTIONS (3)
  - Hepatic failure [Recovered/Resolved]
  - Tumour hyperprogression [Recovered/Resolved]
  - Colorectal cancer metastatic [Fatal]

NARRATIVE: CASE EVENT DATE: 20190102
